FAERS Safety Report 12195392 (Version 1)
Quarter: 2016Q1

REPORT INFORMATION
  Report Type: Report from Study
  Country: CA (occurrence: CA)
  Receive Date: 20160321
  Receipt Date: 20160321
  Transmission Date: 20160526
  Serious: Yes (Other)
  Sender: FDA-Public Use
  Company Number: CA-JNJFOC-20160312121

PATIENT
  Age: 73 Year
  Sex: Female
  Weight: 68.99 kg

DRUGS (1)
  1. STELARA [Suspect]
     Active Substance: USTEKINUMAB
     Indication: PSORIASIS
     Route: 058
     Dates: start: 20120126

REACTIONS (3)
  - Bronchitis [Unknown]
  - Psoriasis [Unknown]
  - Kidney fibrosis [Unknown]

NARRATIVE: CASE EVENT DATE: 201601
